FAERS Safety Report 22266429 (Version 1)
Quarter: 2023Q2

REPORT INFORMATION
  Report Type: Spontaneous
  Country: GB (occurrence: GB)
  Receive Date: 20230428
  Receipt Date: 20230428
  Transmission Date: 20230721
  Serious: Yes (Other)
  Sender: FDA-Public Use
  Company Number: GB-TEVA-2023-GB-2882486

PATIENT
  Age: 50 Year
  Sex: Female
  Weight: 125 kg

DRUGS (5)
  1. PROGESTERONE [Suspect]
     Active Substance: PROGESTERONE
     Indication: Menopause
     Dosage: 100 MILLIGRAM DAILY; NIGHT
     Route: 065
     Dates: start: 20230329, end: 20230330
  2. CITALOPRAM [Concomitant]
     Active Substance: CITALOPRAM HYDROBROMIDE
     Indication: Depression
     Dates: start: 2002, end: 200204
  3. NUROFEN EXPRESS [Concomitant]
     Indication: Dysmenorrhoea
     Dates: start: 20230326, end: 20230329
  4. ESTRADIOL [Concomitant]
     Active Substance: ESTRADIOL
     Indication: Menopause
     Dates: start: 20230329
  5. TESTOSTERONE [Concomitant]
     Active Substance: TESTOSTERONE
     Indication: Menopause
     Dates: start: 20230329

REACTIONS (4)
  - Dyspnoea [Recovering/Resolving]
  - Anxiety [Recovering/Resolving]
  - Tachyphrenia [Recovered/Resolved]
  - Pollakiuria [Recovered/Resolved]

NARRATIVE: CASE EVENT DATE: 20230329
